FAERS Safety Report 6131511-9 (Version None)
Quarter: 2009Q1

REPORT INFORMATION
  Report Type: 
  Country: None (occurrence: None)
  Receive Date: 20090325
  Receipt Date: 20080926
  Transmission Date: 20090719
  Serious: Yes (Life-Threatening)
  Sender: FDA-Public Use
  Company Number: US-BRISTOL-MYERS SQUIBB COMPANY-14329932

PATIENT
  Age: 54 Year
  Sex: Male

DRUGS (11)
  1. ERBITUX [Suspect]
     Indication: COLON CANCER METASTATIC
     Dosage: DURATION OF THERAPY - APPROX 10 MINUTES.
     Route: 042
     Dates: start: 20080731, end: 20080731
  2. ALOXI [Concomitant]
     Indication: PREMEDICATION
  3. ATIVAN [Concomitant]
     Indication: PREMEDICATION
  4. BENADRYL [Concomitant]
     Indication: PREMEDICATION
  5. DECADRON [Concomitant]
     Indication: PREMEDICATION
     Route: 042
  6. LEUKINE [Concomitant]
     Dates: start: 20080725
  7. GLIPIZIDE [Concomitant]
  8. ZOCOR [Concomitant]
  9. OXYCODONE HCL [Concomitant]
  10. IBUPROFEN TABLETS [Concomitant]
  11. AMBIEN [Concomitant]

REACTIONS (3)
  - DROOLING [None]
  - HYPERHIDROSIS [None]
  - LOSS OF CONSCIOUSNESS [None]
